FAERS Safety Report 8691165 (Version 4)
Quarter: 2012Q4

REPORT INFORMATION
  Report Type: Report from Study
  Country: DE (occurrence: DE)
  Receive Date: 20120730
  Receipt Date: 20120910
  Transmission Date: 20130627
  Serious: Yes (Hospitalization)
  Sender: FDA-Public Use
  Company Number: DE-NOVOPROD-356248

PATIENT
  Age: 31 Year
  Sex: Female
  Weight: 106.2 kg

DRUGS (3)
  1. LIRAGLUTIDE FLEXPEN [Suspect]
     Indication: OBESITY
     Dosage: 0.6 mg, qd
     Route: 058
     Dates: start: 20110907
  2. LIRAGLUTIDE FLEXPEN [Suspect]
     Dosage: 3.0 mg, qd
     Route: 058
     Dates: start: 20111012, end: 20120709
  3. LIRAGLUTIDE FLEXPEN [Suspect]
     Dosage: 3.0 mg, qd
     Route: 058
     Dates: start: 20120711

REACTIONS (1)
  - Cholelithiasis [Recovered/Resolved]
